FAERS Safety Report 16189177 (Version 1)
Quarter: 2019Q2

REPORT INFORMATION
  Report Type: Spontaneous
  Country: US (occurrence: US)
  Receive Date: 20190411
  Receipt Date: 20190411
  Transmission Date: 20190711
  Serious: Yes (Other)
  Sender: FDA-Public Use
  Company Number: None

PATIENT
  Age: 4 Year
  Sex: Female
  Weight: 18.9 kg

DRUGS (6)
  1. MIRALAX GENERIC [Suspect]
     Active Substance: POLYETHYLENE GLYCOL 3350
     Indication: CONSTIPATION
  2. MULTIVITAMIN [Concomitant]
     Active Substance: VITAMINS
  3. DITROPAN XL [Concomitant]
     Active Substance: OXYBUTYNIN CHLORIDE
  4. PROBIOTIC [Concomitant]
     Active Substance: PROBIOTICS NOS
  5. COLACE [Concomitant]
     Active Substance: DOCUSATE SODIUM
  6. SENOKOT [Concomitant]
     Active Substance: SENNOSIDES

REACTIONS (4)
  - Therapeutic response changed [None]
  - Crying [None]
  - Abnormal behaviour [None]
  - Anxiety [None]

NARRATIVE: CASE EVENT DATE: 20151115
